FAERS Safety Report 7042036-0 (Version None)
Quarter: 2010Q4

REPORT INFORMATION
  Report Type: 
  Country: None (occurrence: None)
  Receive Date: 20101013
  Receipt Date: 20100628
  Transmission Date: 20110411
  Serious: No
  Sender: FDA-Public Use
  Company Number: US-ASTRAZENECA-2010SE30114

PATIENT
  Age: 775 Month
  Sex: Female

DRUGS (6)
  1. SYMBICORT [Suspect]
     Dosage: 160/4.5, 2 PUFFS
     Route: 055
     Dates: start: 20080601
  2. PREDNISONE [Concomitant]
  3. SYNTHROID [Concomitant]
  4. NEXIUM [Concomitant]
  5. HYDROCHLOROT [Concomitant]
  6. LUMIGIN [Concomitant]

REACTIONS (2)
  - AGEUSIA [None]
  - CANDIDIASIS [None]
